FAERS Safety Report 8529699-5 (Version None)
Quarter: 2012Q3

REPORT INFORMATION
  Report Type: 
  Country: None (occurrence: None)
  Receive Date: 20120717
  Receipt Date: 20120717
  Transmission Date: 20120928
  Serious: No
  Sender: FDA-Public Use
  Company Number: None

PATIENT

DRUGS (1)
  1. DOBUTAMINE HCL [Suspect]
     Dosage: BAXTER HEALTHCARE CORPORATION 1000 MCG/ML 2000 MCG/ML 4000 MCG/ML
     Route: 041

REACTIONS (4)
  - INTERCEPTED DRUG PRESCRIBING ERROR [None]
  - PRODUCT QUALITY ISSUE [None]
  - MEDICATION ERROR [None]
  - CIRCUMSTANCE OR INFORMATION CAPABLE OF LEADING TO MEDICATION ERROR [None]
